FAERS Safety Report 7514427-2 (Version None)
Quarter: 2011Q2

REPORT INFORMATION
  Report Type: 
  Country: None (occurrence: None)
  Receive Date: 20110601
  Receipt Date: 20110517
  Transmission Date: 20111010
  Serious: Yes (Hospitalization)
  Sender: FDA-Public Use
  Company Number: FR-JNJFOC-20110510747

PATIENT
  Sex: Female

DRUGS (8)
  1. ZOLPIDEM [Concomitant]
     Route: 065
     Dates: start: 20110101, end: 20110101
  2. PANTOPRAZOLE SODIUM [Concomitant]
     Route: 065
  3. HYDROCHLOROTHIAZIDE [Concomitant]
     Dates: end: 20110208
  4. CHONDROSULF [Concomitant]
     Route: 065
  5. ACETAMINOPHEN AND TRAMADOL HCL [Suspect]
     Indication: PRODUCT USED FOR UNKNOWN INDICATION
     Route: 048
     Dates: end: 20110208
  6. LEVOTHYROXINE SODIUM [Concomitant]
     Route: 065
  7. PAROXETINE HCL [Concomitant]
     Route: 065
  8. KETOPROFEN [Concomitant]
     Route: 065

REACTIONS (3)
  - HYPOKALAEMIA [None]
  - CONSTIPATION [None]
  - HYPONATRAEMIA [None]
